FAERS Safety Report 6031496-X (Version None)
Quarter: 2008Q4

REPORT INFORMATION
  Report Type: 
  Country: None (occurrence: None)
  Receive Date: 20081229
  Receipt Date: 20080919
  Transmission Date: 20090506
  Serious: Yes (Death)
  Sender: FDA-Public Use
  Company Number: 173926USA

PATIENT
  Sex: Male

DRUGS (6)
  1. DOXEPIN HCL [Suspect]
     Indication: ANXIETY
     Dosage: 300 MG (300 MG, 1 IN 1 D), ORAL
     Route: 048
     Dates: start: 20071009, end: 20080524
  2. DOXEPIN HCL [Suspect]
     Indication: DEPRESSION
     Dosage: 300 MG (300 MG, 1 IN 1 D), ORAL
     Route: 048
     Dates: start: 20071009, end: 20080524
  3. NORDOXEPIN [Suspect]
  4. HALOPERIDOL [Concomitant]
  5. BENZTROPINE MESYLATE [Concomitant]
  6. HALOPERIDOL [Concomitant]

REACTIONS (5)
  - ALCOHOL POISONING [None]
  - ANXIETY [None]
  - DEPRESSION [None]
  - DRUG TOXICITY [None]
  - SLEEP DISORDER [None]
